FAERS Safety Report 4724929-X (Version None)
Quarter: 2005Q3

REPORT INFORMATION
  Report Type: 
  Country: None (occurrence: None)
  Receive Date: 20050720
  Receipt Date: 20050720
  Transmission Date: 20060218
  Serious: Yes (Hospitalization)
  Sender: FDA-Public Use
  Company Number: None

PATIENT
  Sex: Male

DRUGS (9)
  1. ROSIGLITAZONE   8 MG [Suspect]
     Indication: DIABETES MELLITUS
     Dosage: 4 MG   DAILY   ORAL
     Route: 048
     Dates: start: 20041104, end: 20050208
  2. ROSIGLITAZONE    8 MG [Suspect]
     Indication: DIABETES MELLITUS
     Dosage: 8 MG   DAILY   ORAL
     Route: 048
     Dates: start: 20050209, end: 20050511
  3. RANITIDINE [Concomitant]
  4. METOPROLOL [Concomitant]
  5. LISINOPRIL [Concomitant]
  6. HYDROCHLOROTHIAZIDE [Concomitant]
  7. GLYBURIDE [Concomitant]
  8. FELODIPINE [Concomitant]
  9. AGGRENOX [Concomitant]

REACTIONS (2)
  - CARDIAC FAILURE CONGESTIVE [None]
  - CONDITION AGGRAVATED [None]
